FAERS Safety Report 19735751 (Version 2)
Quarter: 2021Q3

REPORT INFORMATION
  Report Type: Spontaneous
  Country: US (occurrence: US)
  Receive Date: 20210823
  Receipt Date: 20210916
  Transmission Date: 20211014
  Serious: No
  Sender: FDA-Public Use
  Company Number: US-GLAXOSMITHKLINE-US2021175313

PATIENT
  Sex: Female

DRUGS (1)
  1. ADVAIR DISKUS [Suspect]
     Active Substance: FLUTICASONE PROPIONATE\SALMETEROL XINAFOATE
     Indication: PRODUCT USED FOR UNKNOWN INDICATION
     Dosage: 1 PUFF(S) BID, 250/50 MCG
     Route: 055
     Dates: start: 1999

REACTIONS (4)
  - Product complaint [Unknown]
  - Mouth cyst [Recovered/Resolved]
  - Oral pain [Unknown]
  - Drug ineffective [Not Recovered/Not Resolved]
